FAERS Safety Report 24235444 (Version 16)
Quarter: 2025Q4

REPORT INFORMATION
  Report Type: Spontaneous
  Country: EU (occurrence: EU)
  Receive Date: 20240821
  Receipt Date: 20251124
  Transmission Date: 20260118
  Serious: Yes (Hospitalization, Other)
  Sender: ORGANON
  Company Number: EU-SYNOPTIS-050-L-0003

PATIENT
  Age: 31 Year
  Sex: Female

DRUGS (110)
  1. MIRTAZAPINE [Interacting]
     Active Substance: MIRTAZAPINE
     Indication: Insomnia
     Dosage: 30 MILLIGRAM, FOR 24 HOURS (Q24H)/QD (NIGHT)
     Route: 065
  2. MIRTAZAPINE [Interacting]
     Active Substance: MIRTAZAPINE
     Indication: Depression
  3. AMLODIPINE BESYLATE [Interacting]
     Active Substance: AMLODIPINE BESYLATE
     Indication: Hypertension
     Dosage: 10 MILLIGRAM, QD
     Route: 065
  4. AMLODIPINE BESYLATE [Interacting]
     Active Substance: AMLODIPINE BESYLATE
     Dosage: 10 MG
     Route: 065
  5. AMLODIPINE BESYLATE [Interacting]
     Active Substance: AMLODIPINE BESYLATE
     Dosage: 10 MG
     Route: 065
  6. RAMIPRIL [Interacting]
     Active Substance: RAMIPRIL
     Indication: Hypertension
     Dosage: 10 MG, QD
     Route: 065
  7. RAMIPRIL [Interacting]
     Active Substance: RAMIPRIL
     Dosage: 10 MG, QD
     Route: 065
  8. SERTRALINE [Interacting]
     Active Substance: SERTRALINE HYDROCHLORIDE
     Indication: Insomnia
     Dosage: 100 MG/D IN THE MORNING
     Route: 065
  9. SERTRALINE [Interacting]
     Active Substance: SERTRALINE HYDROCHLORIDE
     Indication: Depression
     Dosage: 100 MILLIGRAM, QD, IN THE MORNING
     Route: 065
  10. KETOPROFEN [Suspect]
     Active Substance: KETOPROFEN
     Indication: Oropharyngeal pain
     Dosage: 100 MG OF KETOPROFEN IN A COMBINATION WITH 2500 MG OF METAMIZOLE
  11. KETOPROFEN [Suspect]
     Active Substance: KETOPROFEN
     Indication: Product used for unknown indication
     Dosage: 100 MILLIGRAM, IN COMBINATION WITH METAMIZOLE 2500 MG ROUTE OF ADMIN (FREE TEXT): INTRAVENOUS (NOT OTHERWISE SPECIFIED)
  12. KETOPROFEN [Suspect]
     Active Substance: KETOPROFEN
     Dosage: 100 MILLIGRAM, IN COMBINATION WITH METAMIZOLE 2500 MG ROUTE OF ADMIN (FREE TEXT): INTRAVENOUS (NOT OTHERWISE SPECIFIED)
  13. KETOPROFEN [Suspect]
     Active Substance: KETOPROFEN
     Dosage: 100 MILLIGRAM, IN COMBINATION WITH METAMIZOLE 2500 MG ROUTE OF ADMIN (FREE TEXT): INTRAVENOUS (NOT OTHERWISE SPECIFIED)
  14. KETOPROFEN [Suspect]
     Active Substance: KETOPROFEN
     Dosage: 100 MILLIGRAM, IN COMBINATION WITH METAMIZOLE 2500 MG ROUTE OF ADMIN (FREE TEXT): INTRAVENOUS (NOT OTHERWISE SPECIFIED)
  15. KETOPROFEN [Suspect]
     Active Substance: KETOPROFEN
     Dosage: 100.000MG
  16. KETOPROFEN [Suspect]
     Active Substance: KETOPROFEN
     Dosage: 100 MILLIGRAM, IN COMBINATION WITH METAMIZOLE 2500 MG ROUTE OF ADMIN (FREE TEXT): INTRAVENOUS (NOT OTHERWISE SPECIFIED)
     Route: 065
  17. NALTREXONE [Interacting]
     Active Substance: NALTREXONE
     Indication: Insomnia
     Dosage: UNK
  18. NALTREXONE [Interacting]
     Active Substance: NALTREXONE
     Indication: Depression
  19. NALTREXONE [Interacting]
     Active Substance: NALTREXONE
     Indication: Product used for unknown indication
  20. DICLOFENAC [Interacting]
     Active Substance: DICLOFENAC
     Indication: Throat irritation
     Dosage: UNK (MOUTHWASH)
     Route: 065
  21. DICLOFENAC [Interacting]
     Active Substance: DICLOFENAC
     Indication: Dysphagia
     Dosage: UNK
     Route: 065
  22. DICLOFENAC [Interacting]
     Active Substance: DICLOFENAC
     Indication: Oropharyngeal pain
     Dosage: UNK
     Route: 065
  23. DICLOFENAC [Interacting]
     Active Substance: DICLOFENAC
     Dosage: UNK
     Route: 065
  24. METAMIZOLE [Suspect]
     Active Substance: METAMIZOLE
     Indication: Oropharyngeal pain
     Dosage: INTRAVENOUS KETOPROFEN 100 MG IN COMBINATION WITH METHAMIZOLE 2500 MG
  25. METAMIZOLE [Suspect]
     Active Substance: METAMIZOLE
     Indication: Product used for unknown indication
     Dosage: 2500 MILLIGRAM, IN COMBINATION WITH KETOPROFEN 100 MG
     Route: 065
  26. METAMIZOLE [Suspect]
     Active Substance: METAMIZOLE
     Dosage: 2500 MILLIGRAM, INTRAVENOUS KETOPROFEN 100 MG IN COMBINATION WITH METHAMIZOLE 2500 MG
     Route: 065
  27. METAMIZOLE [Suspect]
     Active Substance: METAMIZOLE
     Dosage: 2500 MILLIGRAM, INTRAVENOUS KETOPROFEN 100 MG IN COMBINATION WITH METHAMIZOLE 2500 MG
     Route: 065
  28. BUPROPION HYDROCHLORIDE\NALTREXONE HYDROCHLORIDE [Interacting]
     Active Substance: BUPROPION HYDROCHLORIDE\NALTREXONE HYDROCHLORIDE
     Indication: Depression
     Dosage: UNK
     Route: 065
  29. BUPROPION HYDROCHLORIDE\NALTREXONE HYDROCHLORIDE [Interacting]
     Active Substance: BUPROPION HYDROCHLORIDE\NALTREXONE HYDROCHLORIDE
     Indication: Insomnia
     Dosage: STRENGTH 8/90 MG
     Route: 065
  30. BUPROPION HYDROCHLORIDE\NALTREXONE HYDROCHLORIDE [Interacting]
     Active Substance: BUPROPION HYDROCHLORIDE\NALTREXONE HYDROCHLORIDE
     Indication: Weight control
  31. BUPROPION HYDROCHLORIDE\NALTREXONE HYDROCHLORIDE [Interacting]
     Active Substance: BUPROPION HYDROCHLORIDE\NALTREXONE HYDROCHLORIDE
     Indication: Mental disorder
  32. AMOXICILLIN [Interacting]
     Active Substance: AMOXICILLIN
     Indication: Oropharyngeal pain
     Dosage: 3X1G (1 G, TID)
  33. AMOXICILLIN [Interacting]
     Active Substance: AMOXICILLIN
     Indication: Dysphagia
     Dosage: 1 GRAM, Q8H
  34. AMOXICILLIN [Interacting]
     Active Substance: AMOXICILLIN
     Indication: Throat irritation
     Dosage: 1 G, Q8H
  35. AMOXICILLIN [Interacting]
     Active Substance: AMOXICILLIN
     Indication: Burning sensation
  36. ACETAMINOPHEN [Interacting]
     Active Substance: ACETAMINOPHEN
     Indication: Dysphagia
     Dosage: 3X1G
  37. ACETAMINOPHEN [Interacting]
     Active Substance: ACETAMINOPHEN
     Indication: Oropharyngeal pain
     Dosage: 1 GRAM, Q8H
  38. ACETAMINOPHEN [Interacting]
     Active Substance: ACETAMINOPHEN
     Indication: Throat irritation
     Dosage: 1 G, TID,
  39. ACETAMINOPHEN [Interacting]
     Active Substance: ACETAMINOPHEN
     Indication: Burning sensation
  40. LIDOCAINE [Interacting]
     Active Substance: LIDOCAINE
     Indication: Dysphagia
     Dosage: LOZENGES
  41. LIDOCAINE [Interacting]
     Active Substance: LIDOCAINE
     Indication: Oropharyngeal pain
     Dosage: UNK
     Route: 065
  42. LIDOCAINE [Interacting]
     Active Substance: LIDOCAINE
     Indication: Throat irritation
  43. LIDOCAINE [Interacting]
     Active Substance: LIDOCAINE
     Indication: Oropharyngeal pain
  44. ZOLPIDEM [Interacting]
     Active Substance: ZOLPIDEM TARTRATE
     Indication: Weight control
     Dosage: UNK
     Route: 065
  45. ZOLPIDEM [Interacting]
     Active Substance: ZOLPIDEM TARTRATE
     Indication: Mental disorder
     Dosage: UNK
     Route: 065
  46. ZOLPIDEM [Interacting]
     Active Substance: ZOLPIDEM TARTRATE
     Indication: Insomnia
     Dosage: UNK
     Route: 065
  47. ZOLPIDEM [Interacting]
     Active Substance: ZOLPIDEM TARTRATE
     Indication: Depression
  48. ZOLPIDEM [Interacting]
     Active Substance: ZOLPIDEM TARTRATE
     Indication: Product used for unknown indication
  49. SEMAGLUTIDE [Suspect]
     Active Substance: SEMAGLUTIDE
     Indication: Weight control
     Dosage: UNK
  50. SEMAGLUTIDE [Suspect]
     Active Substance: SEMAGLUTIDE
     Indication: Insomnia
     Dosage: UNK
     Route: 065
  51. SEMAGLUTIDE [Suspect]
     Active Substance: SEMAGLUTIDE
     Indication: Depression
     Dosage: UNK, SOLUTION FOR INJECTION IN PRE-FILLED SYRINGE
  52. SEMAGLUTIDE [Suspect]
     Active Substance: SEMAGLUTIDE
     Indication: Mental disorder
     Dosage: UNK
     Route: 065
  53. SEMAGLUTIDE [Suspect]
     Active Substance: SEMAGLUTIDE
     Indication: Mental disorder
  54. SEMAGLUTIDE [Suspect]
     Active Substance: SEMAGLUTIDE
     Indication: Weight increased
  55. BUPROPION [Interacting]
     Active Substance: BUPROPION
     Indication: Depression
     Dosage: UNK
     Route: 065
  56. BUPROPION [Interacting]
     Active Substance: BUPROPION
     Indication: Insomnia
     Dosage: UNK
     Route: 065
  57. BUPROPION [Interacting]
     Active Substance: BUPROPION
     Indication: Product used for unknown indication
  58. BUPROPION [Interacting]
     Active Substance: BUPROPION
     Indication: Weight increased
  59. BUPROPION [Interacting]
     Active Substance: BUPROPION
     Indication: Mental disorder
  60. AMBROXOL [Suspect]
     Active Substance: AMBROXOL
     Indication: Oropharyngeal pain
     Dosage: UNK
  61. AMBROXOL [Suspect]
     Active Substance: AMBROXOL
     Indication: Neuralgia
     Dosage: UNK
  62. AMBROXOL [Suspect]
     Active Substance: AMBROXOL
     Indication: Mental disorder
     Dosage: MOUTHWASH
     Route: 065
  63. AMOXICILLIN\CLAVULANATE POTASSIUM [Interacting]
     Active Substance: AMOXICILLIN\CLAVULANATE POTASSIUM
     Indication: Oropharyngeal pain
     Dosage: UNK
     Route: 065
  64. AMOXICILLIN\CLAVULANATE POTASSIUM [Interacting]
     Active Substance: AMOXICILLIN\CLAVULANATE POTASSIUM
     Indication: Throat irritation
     Dosage: 1 GRAM, Q8H
  65. AMOXICILLIN\CLAVULANATE POTASSIUM [Interacting]
     Active Substance: AMOXICILLIN\CLAVULANATE POTASSIUM
     Indication: Dysphagia
     Dosage: 3 GRAM
  66. LIDOCAINE [Suspect]
     Active Substance: LIDOCAINE
     Indication: Dysphagia
     Dosage: UNK
     Route: 065
  67. LIDOCAINE [Suspect]
     Active Substance: LIDOCAINE
     Indication: Oropharyngeal pain
     Dosage: NON-COMPANY FORMULATION (ORAL SOLUTION)
  68. LIDOCAINE [Suspect]
     Active Substance: LIDOCAINE
     Indication: Throat irritation
  69. ACETAMINOPHEN [Interacting]
     Active Substance: ACETAMINOPHEN
     Indication: Oropharyngeal pain
     Dosage: 1 G, Q8H
  70. ACETAMINOPHEN [Interacting]
     Active Substance: ACETAMINOPHEN
     Indication: Dysphagia
     Dosage: 1 G, Q8H
  71. ACETAMINOPHEN [Interacting]
     Active Substance: ACETAMINOPHEN
     Indication: Throat irritation
  72. BUPROPION HYDROCHLORIDE\NALTREXONE HYDROCHLORIDE [Interacting]
     Active Substance: BUPROPION HYDROCHLORIDE\NALTREXONE HYDROCHLORIDE
     Indication: Weight control
     Dosage: STRENGTH 8/90 MG
     Route: 065
  73. BUPROPION HYDROCHLORIDE\NALTREXONE HYDROCHLORIDE [Interacting]
     Active Substance: BUPROPION HYDROCHLORIDE\NALTREXONE HYDROCHLORIDE
     Indication: Mental disorder
     Dosage: UNK
     Route: 065
  74. BUPROPION HYDROCHLORIDE\NALTREXONE HYDROCHLORIDE [Interacting]
     Active Substance: BUPROPION HYDROCHLORIDE\NALTREXONE HYDROCHLORIDE
     Indication: Depression
  75. BUPROPION HYDROCHLORIDE\NALTREXONE HYDROCHLORIDE [Interacting]
     Active Substance: BUPROPION HYDROCHLORIDE\NALTREXONE HYDROCHLORIDE
     Indication: Insomnia
  76. MAGNESIUM SULFATE [Concomitant]
     Active Substance: MAGNESIUM SULFATE
     Indication: Product used for unknown indication
     Dosage: UNK
  77. MAGNESIUM SULFATE [Concomitant]
     Active Substance: MAGNESIUM SULFATE
     Dosage: ROUTE OF ADMIN (FREE TEXT): INTRAVENOUS (NOT OTHERWISE SPECIFIED)
  78. MAGNESIUM SULFATE [Concomitant]
     Active Substance: MAGNESIUM SULFATE
     Dosage: ROUTE OF ADMIN (FREE TEXT): INTRAVENOUS (NOT OTHERWISE SPECIFIED)
  79. MAGNESIUM SULFATE [Concomitant]
     Active Substance: MAGNESIUM SULFATE
     Dosage: ROUTE OF ADMIN (FREE TEXT): INTRAVENOUS (NOT OTHERWISE SPECIFIED)
  80. MAGNESIUM SULFATE [Concomitant]
     Active Substance: MAGNESIUM SULFATE
     Dosage: ROUTE OF ADMIN (FREE TEXT): INTRAVENOUS (NOT OTHERWISE SPECIFIED)
  81. MAGNESIUM SULFATE [Concomitant]
     Active Substance: MAGNESIUM SULFATE
     Dosage: ROUTE OF ADMIN (FREE TEXT): INTRAVENOUS (NOT OTHERWISE SPECIFIED)
  82. MAGNESIUM SULFATE [Concomitant]
     Active Substance: MAGNESIUM SULFATE
     Dosage: ROUTE OF ADMIN (FREE TEXT): INTRAVENOUS (NOT OTHERWISE SPECIFIED)
  83. MAGNESIUM SULFATE [Concomitant]
     Active Substance: MAGNESIUM SULFATE
     Dosage: UNK
     Route: 065
  84. ALPHA LIPOIC ACID [Concomitant]
     Active Substance: .ALPHA.-LIPOIC ACID
     Indication: Product used for unknown indication
     Dosage: UNK
  85. ALPHA LIPOIC ACID [Concomitant]
     Active Substance: .ALPHA.-LIPOIC ACID
     Dosage: UNK
     Route: 065
  86. ALPHA LIPOIC ACID [Concomitant]
     Active Substance: .ALPHA.-LIPOIC ACID
     Dosage: UNK
     Route: 065
  87. ALPHA LIPOIC ACID [Concomitant]
     Active Substance: .ALPHA.-LIPOIC ACID
     Dosage: UNK
     Route: 065
  88. TIRZEPATIDE [Concomitant]
     Active Substance: TIRZEPATIDE
     Indication: Product used for unknown indication
     Dosage: UNK
     Route: 065
  89. TIRZEPATIDE [Concomitant]
     Active Substance: TIRZEPATIDE
     Dosage: UNK
     Route: 065
  90. TIRZEPATIDE [Concomitant]
     Active Substance: TIRZEPATIDE
     Dosage: UNK
     Route: 065
  91. TIRZEPATIDE [Concomitant]
     Active Substance: TIRZEPATIDE
     Dosage: UNK
     Route: 065
  92. TIRZEPATIDE [Concomitant]
     Active Substance: TIRZEPATIDE
     Dosage: UNK
     Route: 065
  93. DULOXETINE [Concomitant]
     Active Substance: DULOXETINE
     Indication: Product used for unknown indication
     Dosage: UNK
     Route: 065
  94. DULOXETINE [Concomitant]
     Active Substance: DULOXETINE
     Dosage: UNK
     Route: 065
  95. DULOXETINE [Concomitant]
     Active Substance: DULOXETINE
     Dosage: UNK
     Route: 065
  96. DULOXETINE [Concomitant]
     Active Substance: DULOXETINE
     Dosage: UNK
     Route: 065
  97. DULOXETINE [Concomitant]
     Active Substance: DULOXETINE
     Dosage: UNK
     Route: 065
  98. INDAPAMIDE [Concomitant]
     Active Substance: INDAPAMIDE
     Indication: Product used for unknown indication
     Dosage: UNK
     Route: 065
  99. INDAPAMIDE [Concomitant]
     Active Substance: INDAPAMIDE
     Dosage: UNK
     Route: 065
  100. INDAPAMIDE [Concomitant]
     Active Substance: INDAPAMIDE
     Dosage: UNK
     Route: 065
  101. INDAPAMIDE [Concomitant]
     Active Substance: INDAPAMIDE
     Dosage: UNK
     Route: 065
  102. INDAPAMIDE [Concomitant]
     Active Substance: INDAPAMIDE
     Dosage: UNK
     Route: 065
  103. TELMISARTAN [Concomitant]
     Active Substance: TELMISARTAN
     Indication: Product used for unknown indication
     Dosage: UNK
     Route: 065
  104. TELMISARTAN [Concomitant]
     Active Substance: TELMISARTAN
     Dosage: UNK
     Route: 065
  105. TELMISARTAN [Concomitant]
     Active Substance: TELMISARTAN
     Dosage: UNK
     Route: 065
  106. TELMISARTAN [Concomitant]
     Active Substance: TELMISARTAN
     Dosage: UNK
     Route: 065
  107. LIDOCAINE HYDROCHLORIDE [Concomitant]
     Active Substance: LIDOCAINE HYDROCHLORIDE
     Indication: Dysphagia
     Dosage: LOZENGES
     Route: 065
  108. LIDOCAINE HYDROCHLORIDE [Concomitant]
     Active Substance: LIDOCAINE HYDROCHLORIDE
     Indication: Throat irritation
     Dosage: UNK
  109. LIDOCAINE HYDROCHLORIDE [Concomitant]
     Active Substance: LIDOCAINE HYDROCHLORIDE
     Indication: Oropharyngeal pain
  110. AMOXICILLIN [Concomitant]
     Active Substance: AMOXICILLIN
     Indication: Product used for unknown indication
     Dosage: UNK

REACTIONS (27)
  - Oropharyngeal pain [Recovering/Resolving]
  - Throat irritation [Recovering/Resolving]
  - Pain [Recovering/Resolving]
  - Condition aggravated [Recovering/Resolving]
  - Dysphagia [Recovering/Resolving]
  - Weight increased [Unknown]
  - Drug interaction [Recovering/Resolving]
  - Mental disorder [Unknown]
  - Drug ineffective [Unknown]
  - Food interaction [Recovering/Resolving]
  - Drug interaction [Unknown]
  - Medication error [Unknown]
  - Labelled drug-drug interaction medication error [Unknown]
  - Contraindicated product administered [Unknown]
  - Drug ineffective [Unknown]
  - Drug intolerance [Unknown]
  - Off label use [Unknown]
  - Off label use [Unknown]
  - Condition aggravated [Unknown]
  - Burning sensation [Recovering/Resolving]
  - Weight increased [Unknown]
  - Increased appetite [Unknown]
  - Emotional distress [Unknown]
  - Throat irritation [Recovering/Resolving]
  - Weight increased [Unknown]
  - Nausea [Unknown]
  - Abdominal pain [Unknown]
